FAERS Safety Report 7523449-7 (Version None)
Quarter: 2011Q2

REPORT INFORMATION
  Report Type: 
  Country: None (occurrence: None)
  Receive Date: 20110525
  Receipt Date: 20110518
  Transmission Date: 20111010
  Serious: Yes (Hospitalization)
  Sender: FDA-Public Use
  Company Number: LEO-2011-00451

PATIENT
  Age: 64 Year
  Sex: Male

DRUGS (1)
  1. INNOHEP [Suspect]
     Dosage: DAILY INJECTIONS, SUBCUTANEOUS
     Route: 058

REACTIONS (4)
  - APHASIA [None]
  - OXYGEN SATURATION DECREASED [None]
  - CEREBRAL INFARCTION [None]
  - HEMIPARESIS [None]
